FAERS Safety Report 5443915-8 (Version None)
Quarter: 2007Q3

REPORT INFORMATION
  Report Type: 
  Country: None (occurrence: None)
  Receive Date: 20070905
  Receipt Date: 20070818
  Transmission Date: 20080115
  Serious: No
  Sender: FDA-Public Use
  Company Number: US-BOEHRINGER INGELHEIM PHARMACEUTICALS, INC.-2007-BP-19555BP

PATIENT
  Age: 87 Year
  Sex: Female

DRUGS (2)
  1. MIRAPEX [Suspect]
     Route: 048
     Dates: start: 20070801, end: 20070816
  2. NAMENDA [Concomitant]

REACTIONS (5)
  - ANOREXIA [None]
  - MALAISE [None]
  - MEDICATION ERROR [None]
  - SOMNOLENCE [None]
  - VOMITING [None]
